FAERS Safety Report 4459680-7 (Version None)
Quarter: 2004Q3

REPORT INFORMATION
  Report Type: 
  Country: None (occurrence: None)
  Receive Date: 20040923
  Receipt Date: 20040923
  Transmission Date: 20050211
  Serious: Yes (Hospitalization)
  Sender: FDA-Public Use
  Company Number: None

PATIENT
  Age: 64 Year
  Sex: Female
  Weight: 101.1521 kg

DRUGS (16)
  1. CYCLOGYL [Suspect]
     Indication: CYCLOPLEGIA
     Dosage: 1 GTT LEFT EYE Q 4-6 HR X 2 DAYS
     Dates: start: 20040826, end: 20040908
  2. CYCLOGYL [Suspect]
     Indication: MYDRIASIS
     Dosage: 1 GTT LEFT EYE Q 4-6 HR X 2 DAYS
     Dates: start: 20040826, end: 20040908
  3. IMITREX [Concomitant]
  4. TYLENOL [Concomitant]
  5. ZOCOR [Concomitant]
  6. ZYRTEC [Concomitant]
  7. VIOXX [Concomitant]
  8. KEFLEX [Concomitant]
  9. EVISTA [Concomitant]
  10. CALAN [Concomitant]
  11. SYNTHROID [Concomitant]
  12. IRON SULFATETHIAMIN COMPOUND TAB [Concomitant]
  13. LASIX [Concomitant]
  14. ALLOPURINOL [Concomitant]
  15. MOXIFLOXACIN EYE DROPS [Concomitant]
  16. CYCLOGYL EYE DROPS [Concomitant]

REACTIONS (9)
  - BODY TEMPERATURE INCREASED [None]
  - CONFUSIONAL STATE [None]
  - DISTURBANCE IN ATTENTION [None]
  - DRUG TOXICITY [None]
  - GRAND MAL CONVULSION [None]
  - MEDICATION ERROR [None]
  - MUSCLE SPASTICITY [None]
  - MYOCLONUS [None]
  - TREMOR [None]
